FAERS Safety Report 19956491 (Version 1)
Quarter: 2021Q4

REPORT INFORMATION
  Report Type: Report from Study
  Country: US (occurrence: US)
  Receive Date: 20211014
  Receipt Date: 20211014
  Transmission Date: 20220303
  Serious: No
  Sender: FDA-Public Use
  Company Number: US-KYOWAKIRIN-2021BKK017033

PATIENT

DRUGS (2)
  1. CRYSVITA [Suspect]
     Active Substance: BUROSUMAB-TWZA
     Indication: Hereditary hypophosphataemic rickets
     Dosage: 40 MG FOR ONE INJECTION FOLLOWED BY 50 MG NEXT INJECTION, FOR A TOTAL DOSE OF 90 MG, PER MONTH
     Route: 058
  2. CRYSVITA [Suspect]
     Active Substance: BUROSUMAB-TWZA
     Indication: Hereditary hypophosphataemic rickets
     Dosage: 40 MG FOR ONE INJECTION FOLLOWED BY 50 MG NEXT INJECTION, FOR A TOTAL DOSE OF 90 MG, PER MONTH
     Route: 058

REACTIONS (2)
  - Weight decreased [Unknown]
  - Low carbohydrate diet [Not Recovered/Not Resolved]

NARRATIVE: CASE EVENT DATE: 20210101
